FAERS Safety Report 5272331-7 (Version None)
Quarter: 2007Q1

REPORT INFORMATION
  Report Type: 
  Country: None (occurrence: None)
  Receive Date: 20070320
  Receipt Date: 20070320
  Transmission Date: 20070707
  Serious: Yes (Hospitalization)
  Sender: FDA-Public Use
  Company Number: None

PATIENT
  Sex: Male
  Weight: 90.6 kg

DRUGS (5)
  1. TAXOTERE [Suspect]
     Indication: BLADDER CANCER
     Dosage: 75 MG/M2 IVB Q 21 DAYS
     Route: 040
     Dates: start: 20070216
  2. TAXOTERE [Suspect]
     Indication: BLADDER CANCER
     Dosage: 75 MG/M2 IVB Q 21 DAYS
     Route: 040
     Dates: start: 20070309
  3. ZACTIMA [Suspect]
     Dosage: 100MG PO QD X 21 DAYS
     Route: 048
     Dates: start: 20070216, end: 20070316
  4. PLACEBO [Suspect]
     Dosage: 100MG PO QD X 21 DAYS
     Route: 048
     Dates: start: 20070216, end: 20070316
  5. PROTONIX [Concomitant]

REACTIONS (7)
  - COUGH [None]
  - FATIGUE [None]
  - HAEMATOCRIT DECREASED [None]
  - NEUTROPENIA [None]
  - PLATELET COUNT INCREASED [None]
  - PYREXIA [None]
  - WHITE BLOOD CELL COUNT DECREASED [None]
